FAERS Safety Report 18969665 (Version 1)
Quarter: 2021Q1

REPORT INFORMATION
  Report Type: Report from Study
  Country: US (occurrence: US)
  Receive Date: 20210304
  Receipt Date: 20210304
  Transmission Date: 20210420
  Serious: No
  Sender: FDA-Public Use
  Company Number: NVSC2021US043845

PATIENT
  Sex: Male

DRUGS (1)
  1. ENTRESTO [Suspect]
     Active Substance: SACUBITRIL\VALSARTAN
     Indication: CARDIAC FAILURE
     Dosage: 1 DF, BID
     Route: 048
     Dates: start: 202102

REACTIONS (5)
  - Dizziness [Recovering/Resolving]
  - Headache [Unknown]
  - Hot flush [Recovering/Resolving]
  - Chest pain [Recovering/Resolving]
  - Product dose omission issue [Recovering/Resolving]
